FAERS Safety Report 8838684 (Version 1)
Quarter: 2012Q4

REPORT INFORMATION
  Report Type: 
  Country: US (occurrence: US)
  Receive Date: 20121012
  Receipt Date: 20121012
  Transmission Date: 20130627
  Serious: Yes (Other)
  Sender: FDA-Public Use
  Company Number: US-009507513-1210USA002427

PATIENT
  Sex: Female

DRUGS (1)
  1. MIRALAX [Suspect]
     Indication: BOWEL PREPARATION
     Dosage: 238 g, Once
     Route: 048
     Dates: start: 20120525, end: 20120525

REACTIONS (6)
  - Renal failure [Not Recovered/Not Resolved]
  - Haematochezia [Not Recovered/Not Resolved]
  - Tooth loss [Not Recovered/Not Resolved]
  - Alopecia [Not Recovered/Not Resolved]
  - Eye disorder [Not Recovered/Not Resolved]
  - Overdose [Unknown]
